FAERS Safety Report 16019069 (Version 1)
Quarter: 2019Q1

REPORT INFORMATION
  Report Type: Spontaneous
  Country: US (occurrence: US)
  Receive Date: 20190228
  Receipt Date: 20190228
  Transmission Date: 20190418
  Serious: Yes (Hospitalization)
  Sender: FDA-Public Use
  Company Number: US-ASTRAZENECA-2019SE30026

PATIENT
  Sex: Female

DRUGS (11)
  1. TRIAVIL [Concomitant]
     Active Substance: AMITRIPTYLINE HYDROCHLORIDE\PERPHENAZINE
     Indication: DEPRESSION
  2. WELLBUTRIN [Concomitant]
     Active Substance: BUPROPION HYDROCHLORIDE
  3. LAMICTAL [Concomitant]
     Active Substance: LAMOTRIGINE
  4. LITHIUM. [Concomitant]
     Active Substance: LITHIUM
     Indication: BIPOLAR DISORDER
  5. PROZAC [Concomitant]
     Active Substance: FLUOXETINE HYDROCHLORIDE
     Indication: DEPRESSION
  6. ABILIFY [Concomitant]
     Active Substance: ARIPIPRAZOLE
  7. THORAZINE [Concomitant]
     Active Substance: CHLORPROMAZINE
     Indication: DEPRESSION
  8. EFFEXOR [Concomitant]
     Active Substance: VENLAFAXINE HYDROCHLORIDE
  9. DEPAKOTE [Concomitant]
     Active Substance: DIVALPROEX SODIUM
  10. SEROQUEL [Suspect]
     Active Substance: QUETIAPINE FUMARATE
     Route: 048
  11. NAVANE [Concomitant]
     Active Substance: THIOTHIXENE
     Indication: DEPRESSION

REACTIONS (15)
  - Tachyphrenia [Unknown]
  - Lethargy [Unknown]
  - Negative thoughts [Unknown]
  - Weight decreased [Unknown]
  - Thinking abnormal [Unknown]
  - Slow response to stimuli [Unknown]
  - Suicidal ideation [Unknown]
  - Vision blurred [Unknown]
  - Hangover [Unknown]
  - Anxiety [Unknown]
  - Skin burning sensation [Unknown]
  - Dry mouth [Unknown]
  - Enuresis [Unknown]
  - Confusional state [Unknown]
  - Nightmare [Unknown]
